FAERS Safety Report 14110382 (Version 1)
Quarter: 2017Q4

REPORT INFORMATION
  Report Type: Spontaneous
  Country: US (occurrence: US)
  Receive Date: 20171019
  Receipt Date: 20171019
  Transmission Date: 20180321
  Serious: Yes (Other)
  Sender: FDA-Public Use
  Company Number: None

PATIENT
  Sex: Male
  Weight: 65.25 kg

DRUGS (6)
  1. ZOSYN [Concomitant]
     Active Substance: PIPERACILLIN SODIUM\TAZOBACTAM SODIUM
  2. MULTIVITAMIN [Concomitant]
     Active Substance: VITAMINS
  3. ARICEPT [Concomitant]
     Active Substance: DONEPEZIL HYDROCHLORIDE
  4. HALDOL [Suspect]
     Active Substance: HALOPERIDOL
     Indication: AGITATION
     Dosage: ?          QUANTITY:5 MG;OTHER FREQUENCY:1X;?
     Route: 042
     Dates: start: 20171016, end: 20171016
  5. HALDOL [Suspect]
     Active Substance: HALOPERIDOL
     Indication: SEDATION
     Dosage: ?          QUANTITY:5 MG;OTHER FREQUENCY:1X;?
     Route: 042
     Dates: start: 20171016, end: 20171016
  6. EXELON [Concomitant]
     Active Substance: RIVASTIGMINE TARTRATE

REACTIONS (5)
  - Muscle twitching [None]
  - Condition aggravated [None]
  - Muscle rigidity [None]
  - Altered state of consciousness [None]
  - Tremor [None]

NARRATIVE: CASE EVENT DATE: 20171017
